FAERS Safety Report 6090261-8 (Version None)
Quarter: 2009Q1

REPORT INFORMATION
  Report Type: 
  Country: None (occurrence: None)
  Receive Date: 20090224
  Receipt Date: 20081212
  Transmission Date: 20090719
  Serious: No
  Sender: FDA-Public Use
  Company Number: US-ABBOTT-08P-163-0493054-00

PATIENT
  Sex: Male
  Weight: 147.55 kg

DRUGS (3)
  1. SIMCOR [Suspect]
     Indication: BLOOD CHOLESTEROL INCREASED
     Dosage: 1000/20MG
     Dates: start: 20081001, end: 20081208
  2. DIOVAN HCT [Concomitant]
     Indication: HYPERTENSION
  3. METFORMAN [Concomitant]
     Indication: DIABETES MELLITUS

REACTIONS (2)
  - PRURITUS [None]
  - SKIN BURNING SENSATION [None]
